FAERS Safety Report 21519156 (Version 1)
Quarter: 2022Q4

REPORT INFORMATION
  Report Type: Spontaneous
  Country: US (occurrence: US)
  Receive Date: 20221028
  Receipt Date: 20221028
  Transmission Date: 20230113
  Serious: No
  Sender: FDA-Public Use
  Company Number: ALC2022US004195

PATIENT
  Age: 58 Year
  Sex: Female

DRUGS (4)
  1. INVELTYS [Suspect]
     Active Substance: LOTEPREDNOL ETABONATE
     Indication: Cataract operation
     Dosage: 1 GTT, 4X/DAY
     Route: 047
     Dates: start: 202206, end: 202206
  2. INVELTYS [Suspect]
     Active Substance: LOTEPREDNOL ETABONATE
     Indication: Glaucoma surgery
     Dosage: 1 GTT, 4X/DAY
     Route: 047
     Dates: start: 20220611
  3. OFLOXACIN [Concomitant]
     Active Substance: OFLOXACIN
     Indication: Product used for unknown indication
     Dosage: 1 GTT, 2X/DAY
     Route: 047
  4. PROLENSA [Concomitant]
     Active Substance: BROMFENAC SODIUM
     Indication: Product used for unknown indication
     Dosage: 1 GTT, 1X/DAY
     Route: 047

REACTIONS (1)
  - Off label use [Not Recovered/Not Resolved]

NARRATIVE: CASE EVENT DATE: 20220601
